FAERS Safety Report 16072087 (Version 1)
Quarter: 2019Q1

REPORT INFORMATION
  Report Type: Spontaneous
  Country: DE (occurrence: DE)
  Receive Date: 20190314
  Receipt Date: 20190314
  Transmission Date: 20190418
  Serious: Yes (Other)
  Sender: FDA-Public Use
  Company Number: DE-TEVA-2019-DE-1023876

PATIENT
  Sex: Female

DRUGS (6)
  1. VALSARTAN. [Concomitant]
     Active Substance: VALSARTAN
  2. ATORVASTATIN-RATIOPHARM [Suspect]
     Active Substance: ATORVASTATIN
     Dosage: FORM AND DURATION UNKNOWN
     Route: 065
  3. METOPROLOL. [Concomitant]
     Active Substance: METOPROLOL
  4. L-THYROXIN [Concomitant]
     Active Substance: LEVOTHYROXINE SODIUM
  5. TAMOXIFEN-RATIOPHARM 20 MG TABLETTEN [Suspect]
     Active Substance: TAMOXIFEN
     Indication: BREAST CANCER FEMALE
     Dosage: 20 MILLIGRAM DAILY;
     Route: 048
  6. RANITIDIN [Concomitant]
     Active Substance: RANITIDINE HYDROCHLORIDE

REACTIONS (1)
  - Myocardial infarction [Unknown]
